FAERS Safety Report 21591739 (Version 4)
Quarter: 2023Q2

REPORT INFORMATION
  Report Type: Report from Study
  Country: US (occurrence: US)
  Receive Date: 20221114
  Receipt Date: 20230408
  Transmission Date: 20230721
  Serious: No
  Sender: FDA-Public Use
  Company Number: US-002147023-NVSC2022US253659

PATIENT
  Sex: Male

DRUGS (1)
  1. ENTRESTO [Suspect]
     Active Substance: SACUBITRIL\VALSARTAN
     Indication: Cardiac failure chronic
     Dosage: UNK UNK, BID
     Route: 048
     Dates: start: 20221101

REACTIONS (4)
  - Weight decreased [Recovering/Resolving]
  - Oxygen saturation decreased [Recovering/Resolving]
  - Arthralgia [Unknown]
  - Weight fluctuation [Unknown]
